FAERS Safety Report 10362511 (Version 1)
Quarter: 2014Q3

REPORT INFORMATION
  Report Type: Spontaneous
  Country: DE (occurrence: DE)
  Receive Date: 20140805
  Receipt Date: 20140805
  Transmission Date: 20150326
  Serious: Yes (Other)
  Sender: FDA-Public Use
  Company Number: PHHY2014DE094914

PATIENT
  Sex: Male

DRUGS (4)
  1. ZOMETA [Suspect]
     Active Substance: ZOLEDRONIC ACID
     Indication: PROSTATE CANCER METASTATIC
     Dosage: 4 MG, EVERY 4 WEEKS
     Route: 041
  2. NOVAMINSULFON [Concomitant]
     Active Substance: METAMIZOLE
     Dosage: UNK UKN, UNK
     Route: 048
  3. NOVAMINSULFON [Concomitant]
     Active Substance: METAMIZOLE
     Dosage: UNK UKN, UNK
     Route: 041
  4. PARACETAMOL [Concomitant]
     Active Substance: ACETAMINOPHEN
     Dosage: UNK UKN, UNK

REACTIONS (6)
  - Swelling face [Unknown]
  - Toothache [Unknown]
  - Polyneuropathy [Unknown]
  - Lip swelling [Unknown]
  - Pain in jaw [Unknown]
  - Hypoaesthesia [Unknown]
